FAERS Safety Report 5540914-2 (Version None)
Quarter: 2007Q4

REPORT INFORMATION
  Report Type: 
  Country: None (occurrence: None)
  Receive Date: 20071209
  Receipt Date: 20070309
  Transmission Date: 20080405
  Serious: No
  Sender: FDA-Public Use
  Company Number: US-AMGEN-KDL203892

PATIENT
  Sex: Female

DRUGS (1)
  1. ENBREL [Suspect]
     Indication: RHEUMATOID ARTHRITIS
     Route: 058
     Dates: start: 20061215

REACTIONS (10)
  - ASTHENIA [None]
  - CHEST DISCOMFORT [None]
  - EPISTAXIS [None]
  - EYELID OEDEMA [None]
  - GOITRE [None]
  - HEADACHE [None]
  - INJECTION SITE REACTION [None]
  - PAIN IN EXTREMITY [None]
  - PRURITUS GENERALISED [None]
  - SINUSITIS [None]
